FAERS Safety Report 8851641 (Version 1)
Quarter: 2012Q4

REPORT INFORMATION
  Report Type: 
  Country: FR (occurrence: FR)
  Receive Date: 20121022
  Receipt Date: 20121022
  Transmission Date: 20130627
  Serious: Yes (Other)
  Sender: FDA-Public Use
  Company Number: FR-JNJFOC-20121007352

PATIENT
  Age: 9 Year
  Sex: Female
  Weight: 20 kg

DRUGS (7)
  1. REMICADE [Suspect]
     Indication: CROHN^S DISEASE
     Dosage: third infusion
     Route: 042
     Dates: start: 20120806
  2. REMICADE [Suspect]
     Indication: CROHN^S DISEASE
     Route: 042
     Dates: start: 20120626
  3. REMICADE [Suspect]
     Indication: CROHN^S DISEASE
     Route: 042
     Dates: start: 20120824, end: 20120824
  4. ATARAX [Concomitant]
     Indication: PREMEDICATION
     Route: 042
     Dates: start: 20120822, end: 20120824
  5. SOLUPRED [Concomitant]
     Indication: PREMEDICATION
     Route: 042
     Dates: start: 20120822, end: 20120824
  6. AERIUS [Concomitant]
     Indication: PREMEDICATION
     Route: 048
     Dates: start: 20120822, end: 20120824
  7. FERROSTRANE [Concomitant]
     Dosage: 2 coffee spoons every morning and night
     Route: 048

REACTIONS (5)
  - Infusion related reaction [Recovered/Resolved]
  - Malaise [Recovered/Resolved]
  - Bronchospasm [Recovered/Resolved]
  - Erythrosis [Recovered/Resolved]
  - Vomiting [Recovered/Resolved]
